FAERS Safety Report 4500331-0 (Version None)
Quarter: 2004Q4

REPORT INFORMATION
  Report Type: 
  Country: None (occurrence: None)
  Receive Date: 20041109
  Receipt Date: 20041025
  Transmission Date: 20050328
  Serious: Yes (Other)
  Sender: FDA-Public Use
  Company Number: USA031050335

PATIENT
  Age: 55 Year
  Sex: Female
  Weight: 82 kg

DRUGS (5)
  1. HUMULIN N [Suspect]
     Indication: DIABETES MELLITUS
     Dosage: 25 U/2 DAY
     Dates: start: 20030701
  2. HUMULIN R [Suspect]
     Indication: DIABETES MELLITUS
     Dosage: 10 U/2 DAY
     Dates: start: 20030701
  3. HUMULIN-HUMAN  INSULIN (RDNA) : 20% RWEGULAR, 70% NPH(H [Suspect]
     Indication: DIABETES MELLITUS
     Dates: start: 20030101
  4. ASPIRIN [Concomitant]
  5. AMLODIPINE W/BENAZEPRIL [Concomitant]

REACTIONS (30)
  - ACCIDENT [None]
  - BACK PAIN [None]
  - BLOOD GLUCOSE INCREASED [None]
  - BLOOD PRESSURE INADEQUATELY CONTROLLED [None]
  - CARBON MONOXIDE POISONING [None]
  - CHEST PAIN [None]
  - DEPRESSION [None]
  - DISTURBANCE IN ATTENTION [None]
  - DRY MOUTH [None]
  - DYSGEUSIA [None]
  - EMOTIONAL DISORDER [None]
  - FATIGUE [None]
  - FEAR [None]
  - FEELING ABNORMAL [None]
  - HOARSENESS [None]
  - HYPERTENSION [None]
  - HYPOAESTHESIA [None]
  - INJECTION SITE REACTION [None]
  - NAUSEA [None]
  - NECK PAIN [None]
  - NERVE INJURY [None]
  - PAIN IN EXTREMITY [None]
  - PHARMACEUTICAL PRODUCT COMPLAINT [None]
  - PROTEIN URINE [None]
  - RASH [None]
  - ROAD TRAFFIC ACCIDENT [None]
  - SEDATION [None]
  - SKIN LACERATION [None]
  - SKIN ULCER [None]
  - VISION BLURRED [None]
